FAERS Safety Report 4504249-9 (Version None)
Quarter: 2004Q4

REPORT INFORMATION
  Report Type: 
  Country: None (occurrence: None)
  Receive Date: 20041116
  Receipt Date: 20041103
  Transmission Date: 20050328
  Serious: Yes (Hospitalization)
  Sender: FDA-Public Use
  Company Number: S04-USA-07340-01

PATIENT
  Sex: Male

DRUGS (2)
  1. LEXAPRO [Suspect]
  2. ADDERALL 10 [Suspect]

REACTIONS (4)
  - AGITATION [None]
  - DELUSION [None]
  - DRUG INTERACTION [None]
  - HALLUCINATION [None]
